FAERS Safety Report 5704354-5 (Version None)
Quarter: 2008Q2

REPORT INFORMATION
  Report Type: 
  Country: None (occurrence: None)
  Receive Date: 20080411
  Receipt Date: 20080411
  Transmission Date: 20081010
  Serious: Yes (Life-Threatening, Hospitalization)
  Sender: FDA-Public Use
  Company Number: None

PATIENT
  Age: 59 Year
  Sex: Female
  Weight: 53.978 kg

DRUGS (5)
  1. RECLAST [Suspect]
     Indication: OSTEOPOROSIS
     Dosage: 15 MG YEARLY IV
     Route: 042
     Dates: start: 20071129
  2. ESTRACE [Concomitant]
  3. DYAZIDE [Concomitant]
  4. LEXAPRO [Concomitant]
  5. LUNESTA [Concomitant]

REACTIONS (1)
  - MYOCARDIAL INFARCTION [None]
